FAERS Safety Report 9411847 (Version 1)
Quarter: 2013Q3

REPORT INFORMATION
  Report Type: Spontaneous
  Country: US (occurrence: US)
  Receive Date: 20130722
  Receipt Date: 20130722
  Transmission Date: 20140515
  Serious: No
  Sender: FDA-Public Use
  Company Number: US-PFIZER INC-2013212629

PATIENT
  Age: 56 Year
  Sex: Female
  Weight: 58 kg

DRUGS (1)
  1. XANAX [Suspect]
     Dosage: 4 MG, 4X/DAY
     Route: 048

REACTIONS (2)
  - Hepatic enzyme increased [Unknown]
  - Incorrect dose administered [Unknown]
